FAERS Safety Report 4767095-7 (Version None)
Quarter: 2005Q3

REPORT INFORMATION
  Report Type: 
  Country: None (occurrence: None)
  Receive Date: 20050908
  Receipt Date: 20050830
  Transmission Date: 20060218
  Serious: Yes (Other)
  Sender: FDA-Public Use
  Company Number: 2005122973

PATIENT
  Age: 46 Year
  Sex: Female

DRUGS (3)
  1. CARDURA [Suspect]
     Indication: HYPERTENSION
     Dosage: 2 MG ( 2 MG, QD), ORAL
     Route: 048
     Dates: start: 20050504, end: 20050515
  2. IPERTEN (MANIDIPINE HYDROCHLORIDE) [Concomitant]
  3. NEBILOX (NEBIVOLOIL HYDROCHLORIDE) [Concomitant]

REACTIONS (1)
  - VASCULITIS [None]
